FAERS Safety Report 4313152-9 (Version None)
Quarter: 2004Q1

REPORT INFORMATION
  Report Type: 
  Country: None (occurrence: None)
  Receive Date: 20040304
  Receipt Date: 20040225
  Transmission Date: 20041129
  Serious: Yes (Other)
  Sender: FDA-Public Use
  Company Number: 2004201001US

PATIENT
  Sex: Female
  Weight: 59 kg

DRUGS (4)
  1. CELEBREX [Suspect]
     Indication: ARTHRITIS
     Dosage: ORAL
     Route: 048
  2. LIPITOR [Concomitant]
  3. FIORICET [Concomitant]
  4. ENALAPRIL MALEATE [Concomitant]

REACTIONS (3)
  - BODY HEIGHT DECREASED [None]
  - ECCHYMOSIS [None]
  - WEIGHT DECREASED [None]
